FAERS Safety Report 7285049-6 (Version None)
Quarter: 2011Q1

REPORT INFORMATION
  Report Type: 
  Country: None (occurrence: None)
  Receive Date: 20110210
  Receipt Date: 20110126
  Transmission Date: 20110831
  Serious: Yes (Other)
  Sender: FDA-Public Use
  Company Number: GB-RANBAXY-2011RR-41628

PATIENT

DRUGS (5)
  1. OMEPRAZOLE [Concomitant]
     Dosage: 20 MG, BID
  2. FLUCONAZOLE 150MG CAPSULES [Suspect]
     Indication: FUNGAL INFECTION
     Dosage: 150 MG, UNK
  3. GAVISCON [Concomitant]
     Dosage: 8 TEA SPOONS PER DAY
  4. MEBEVERINE [Concomitant]
     Dosage: 135 MG, TID
  5. FLUCONAZOLE 150MG CAPSULES [Suspect]
     Dosage: 150 MG, BID

REACTIONS (3)
  - INTRAOCULAR PRESSURE INCREASED [None]
  - HEADACHE [None]
  - FATIGUE [None]
